FAERS Safety Report 10876101 (Version 1)
Quarter: 2015Q1

REPORT INFORMATION
  Report Type: Spontaneous
  Country: US (occurrence: US)
  Receive Date: 20150227
  Receipt Date: 20150227
  Transmission Date: 20150721
  Serious: No
  Sender: FDA-Public Use
  Company Number: US-AMGEN-USASP2014022670

PATIENT
  Age: 60 Year
  Sex: Female

DRUGS (2)
  1. ENBREL [Suspect]
     Active Substance: ETANERCEPT
     Indication: RHEUMATOID ARTHRITIS
     Dosage: 50 MG, QWK
     Route: 065
     Dates: start: 20070901
  2. METHOTREXATE [Concomitant]
     Active Substance: METHOTREXATE
     Dosage: 17.5 MG, QWK
     Route: 048

REACTIONS (14)
  - Walking aid user [Not Recovered/Not Resolved]
  - Abdominal pain [Recovering/Resolving]
  - Pain in jaw [Recovered/Resolved]
  - Musculoskeletal pain [Recovered/Resolved]
  - Tooth infection [Recovered/Resolved]
  - Pain in extremity [Recovered/Resolved]
  - Tooth disorder [Recovered/Resolved]
  - Diarrhoea [Recovering/Resolving]
  - Insomnia [Recovering/Resolving]
  - Neck pain [Recovered/Resolved]
  - Gait disturbance [Recovering/Resolving]
  - Peripheral swelling [Recovered/Resolved]
  - Body temperature decreased [Recovering/Resolving]
  - Tooth injury [Recovered/Resolved]

NARRATIVE: CASE EVENT DATE: 201105
